FAERS Safety Report 17940125 (Version 1)
Quarter: 2020Q2

REPORT INFORMATION
  Report Type: Spontaneous
  Country: DE (occurrence: DE)
  Receive Date: 20200625
  Receipt Date: 20200625
  Transmission Date: 20200714
  Serious: Yes (Hospitalization, Other)
  Sender: FDA-Public Use
  Company Number: DE-SA-2020SA156475

PATIENT

DRUGS (15)
  1. PREDNISOLONE. [Suspect]
     Active Substance: PREDNISOLONE
     Indication: PRODUCT USED FOR UNKNOWN INDICATION
     Dosage: 5 MG, 1-0-0-0, TABLETS
     Route: 048
  2. ACETYLSALICYLIC ACID [Suspect]
     Active Substance: ASPIRIN
     Indication: PRODUCT USED FOR UNKNOWN INDICATION
     Dosage: 100 MG, 0-1-0-0, TABLETTEN
     Route: 048
  3. PREGABALIN. [Concomitant]
     Active Substance: PREGABALIN
     Dosage: 75 MG, 1-0-0-0, KAPSELN
     Route: 048
  4. METAMIZOL [Concomitant]
     Active Substance: METAMIZOLE SODIUM
     Dosage: 500 MG, NACH BEDARF, TABLETS
     Route: 048
  5. PANTOPRAZOLE [Concomitant]
     Active Substance: PANTOPRAZOLE
     Dosage: 40 MG, 1-0-1-0, TABLETTEN
     Route: 048
  6. FEBUXOSTAT. [Concomitant]
     Active Substance: FEBUXOSTAT
     Dosage: 80 MG, 1-0-0-0, TABLETTEN
     Route: 048
  7. TAMSULOSIN [Concomitant]
     Active Substance: TAMSULOSIN
     Dosage: 0.4 MG, 0-0-1-0, KAPSELN
     Route: 048
  8. CLOPIDOGREL BISULFATE. [Suspect]
     Active Substance: CLOPIDOGREL BISULFATE
     Indication: PRODUCT USED FOR UNKNOWN INDICATION
     Dosage: 75 MG, 1-0-0-0, TABLETTEN
     Route: 048
  9. CARVEDILOL. [Concomitant]
     Active Substance: CARVEDILOL
     Dosage: 25 MG, 1-0-1-0, TABLETTEN
     Route: 048
  10. TORASEMID [Concomitant]
     Active Substance: TORSEMIDE
     Dosage: 5 MG, 0.5-0-0-0, TABLETTEN
     Route: 048
  11. RAMIPRIL. [Concomitant]
     Active Substance: RAMIPRIL
     Dosage: 2.5 MG, 1-0-0-0, TABLETTEN
     Route: 048
  12. MIRCERA [Concomitant]
     Active Substance: METHOXY POLYETHYLENE GLYCOL-EPOETIN BETA
     Dosage: 75 ? / 2 WEEKS, 1-0-0-0
  13. TROSPIUM [Concomitant]
     Active Substance: TROSPIUM
     Dosage: 30 MG, 1-0-0-0
  14. SIMVASTATIN. [Concomitant]
     Active Substance: SIMVASTATIN
     Dosage: 20 MG, 0-0-1-0, TABLETTEN
     Route: 048
  15. XIPAMID [Concomitant]
     Active Substance: XIPAMIDE
     Dosage: 5 MG, 1-0-0-0, TABLETTEN
     Route: 048

REACTIONS (7)
  - Pallor [Unknown]
  - Labelled drug-drug interaction medication error [Unknown]
  - Post procedural haemorrhage [Unknown]
  - Epistaxis [Unknown]
  - Haematochezia [Unknown]
  - Haematoma [Unknown]
  - General physical health deterioration [Unknown]
